FAERS Safety Report 5387855-1 (Version None)
Quarter: 2007Q3

REPORT INFORMATION
  Report Type: 
  Country: None (occurrence: None)
  Receive Date: 20070716
  Receipt Date: 20060726
  Transmission Date: 20080115
  Serious: No
  Sender: FDA-Public Use
  Company Number: A0613473A

PATIENT
  Age: 49 Year
  Sex: Female

DRUGS (1)
  1. NICORETTE [Suspect]
     Dates: start: 20060723, end: 20060724

REACTIONS (3)
  - COLD SWEAT [None]
  - HEART RATE INCREASED [None]
  - NAUSEA [None]
